FAERS Safety Report 10031301 (Version 1)
Quarter: 2014Q1

REPORT INFORMATION
  Report Type: Spontaneous
  Country: GB (occurrence: GB)
  Receive Date: 20140324
  Receipt Date: 20140324
  Transmission Date: 20141002
  Serious: Yes (Disabling, Other)
  Sender: FDA-Public Use
  Company Number: GB-MERCK-1403GBR010093

PATIENT
  Age: 75 Year
  Sex: Male

DRUGS (4)
  1. SIMVASTATIN [Suspect]
     Dosage: UNK
     Route: 048
  2. ATORVASTATIN [Suspect]
     Dosage: UNK
  3. FINASTERIDE [Concomitant]
     Dosage: UNK
     Route: 048
  4. LISINOPRIL [Concomitant]
     Dosage: UNK
     Route: 048

REACTIONS (6)
  - Muscle atrophy [Recovered/Resolved with Sequelae]
  - Mental impairment [Recovered/Resolved with Sequelae]
  - Amnesia [Unknown]
  - Confusional state [Unknown]
  - Myalgia [Recovered/Resolved with Sequelae]
  - Arthralgia [Recovered/Resolved with Sequelae]
